FAERS Safety Report 11339749 (Version 2)
Quarter: 2015Q3

REPORT INFORMATION
  Report Type: Spontaneous
  Country: US (occurrence: US)
  Receive Date: 20150805
  Receipt Date: 20150914
  Transmission Date: 20151125
  Serious: No
  Sender: FDA-Public Use
  Company Number: US-ASTRAZENECA-2015SE72526

PATIENT
  Sex: Female

DRUGS (6)
  1. TOPROL XL [Suspect]
     Active Substance: METOPROLOL SUCCINATE
     Route: 048
  2. EFFEXOR XR [Concomitant]
     Active Substance: VENLAFAXINE HYDROCHLORIDE
  3. SEROQUEL XR [Concomitant]
     Active Substance: QUETIAPINE FUMARATE
  4. NEURONTIN [Suspect]
     Active Substance: GABAPENTIN
     Indication: PAIN
     Dosage: NON-AZ DRUG
     Route: 048
  5. LYRICA [Concomitant]
     Active Substance: PREGABALIN
     Route: 048
  6. NEXIUM [Concomitant]
     Active Substance: ESOMEPRAZOLE MAGNESIUM

REACTIONS (3)
  - Pruritus [Unknown]
  - Disorientation [Recovered/Resolved]
  - Drug hypersensitivity [Unknown]
